FAERS Safety Report 6852221-6 (Version None)
Quarter: 2010Q3

REPORT INFORMATION
  Report Type: 
  Country: None (occurrence: None)
  Receive Date: 20100717
  Receipt Date: 20080115
  Transmission Date: 20110219
  Serious: No
  Sender: FDA-Public Use
  Company Number: US-PFIZER INC-2007094394

PATIENT
  Sex: Male
  Weight: 77.1 kg

DRUGS (10)
  1. CHANTIX [Suspect]
     Indication: SMOKING CESSATION THERAPY
     Dates: start: 20071025
  2. DURAGESIC-100 [Concomitant]
  3. PERCOCET [Concomitant]
  4. EFFEXOR [Concomitant]
  5. PROVIGIL [Concomitant]
  6. ZANAFLEX [Concomitant]
  7. MOBIC [Concomitant]
  8. ZOCOR [Concomitant]
  9. ACIPHEX [Concomitant]
  10. NORCO [Concomitant]

REACTIONS (4)
  - ABNORMAL DREAMS [None]
  - DRUG ADMINISTRATION ERROR [None]
  - FATIGUE [None]
  - NAUSEA [None]
